FAERS Safety Report 5046195-0 (Version None)
Quarter: 2006Q2

REPORT INFORMATION
  Report Type: 
  Country: None (occurrence: None)
  Receive Date: 20060629
  Receipt Date: 20060621
  Transmission Date: 20061013
  Serious: Yes (Hospitalization)
  Sender: FDA-Public Use
  Company Number: 2006-02520

PATIENT
  Age: 36 Year
  Sex: Female

DRUGS (2)
  1. QUININE SULFATE [Suspect]
     Indication: MUSCLE SPASMS
     Dosage: 1 TABLET PRN ORAL
     Route: 048
     Dates: start: 20020101
  2. QUININE SULFATE [Suspect]
     Indication: PAIN IN EXTREMITY
     Dosage: 1 TABLET PRN ORAL
     Route: 048
     Dates: start: 20020101

REACTIONS (7)
  - ANURIA [None]
  - BACK PAIN [None]
  - DRUG INEFFECTIVE [None]
  - HEADACHE [None]
  - HEPATIC ENZYME INCREASED [None]
  - RENAL DISORDER [None]
  - WHITE BLOOD CELL COUNT INCREASED [None]
